FAERS Safety Report 4838879-1 (Version None)
Quarter: 2005Q4

REPORT INFORMATION
  Report Type: 
  Country: None (occurrence: None)
  Receive Date: 20051129
  Receipt Date: 20051114
  Transmission Date: 20060501
  Serious: Yes (Congenital Anomaly)
  Sender: FDA-Public Use
  Company Number: PHFR2005GB03730

PATIENT

DRUGS (2)
  1. CLOZAPINE [Suspect]
     Route: 064
  2. VENLAFAXINE HCL [Suspect]
     Route: 064

REACTIONS (4)
  - CONGENITAL ANOMALY [None]
  - DRUG EXPOSURE DURING PREGNANCY [None]
  - GROWTH RETARDATION [None]
  - HAEMANGIOMA [None]
